FAERS Safety Report 20532923 (Version 1)
Quarter: 2022Q1

REPORT INFORMATION
  Report Type: Spontaneous
  Country: US (occurrence: None)
  Receive Date: 20220301
  Receipt Date: 20220301
  Transmission Date: 20220424
  Serious: No
  Sender: FDA-Public Use
  Company Number: None

PATIENT
  Age: 77 Year
  Sex: Male
  Weight: 78.75 kg

DRUGS (2)
  1. OCTAGAM IMMUNE GLOBULIN (HUMAN) [Suspect]
     Active Substance: HUMAN IMMUNOGLOBULIN G
     Dosage: FREQUENCY : DAILY;?
     Route: 041
     Dates: start: 20220222, end: 20220223
  2. OCTAGAM IMMUNE GLOBULIN (HUMAN) [Concomitant]
     Active Substance: HUMAN IMMUNOGLOBULIN G
     Dates: start: 20220222, end: 20220223

REACTIONS (5)
  - Rash [None]
  - Urticaria [None]
  - Pruritus [None]
  - Dry skin [None]
  - Skin exfoliation [None]

NARRATIVE: CASE EVENT DATE: 20220226
